FAERS Safety Report 6477429-3 (Version None)
Quarter: 2009Q4

REPORT INFORMATION
  Report Type: 
  Country: None (occurrence: None)
  Receive Date: 20091207
  Receipt Date: 20091029
  Transmission Date: 20100525
  Serious: Yes (Other)
  Sender: FDA-Public Use
  Company Number: US-SANOFI-AVENTIS-2009SA000263

PATIENT
  Age: 40 Year
  Sex: Female

DRUGS (1)
  1. UROXATRAL [Suspect]
     Route: 048
     Dates: start: 20091001, end: 20091001

REACTIONS (4)
  - ANAPHYLACTIC REACTION [None]
  - OFF LABEL USE [None]
  - THROAT TIGHTNESS [None]
  - URTICARIA [None]
